FAERS Safety Report 5491428-X (Version None)
Quarter: 2007Q4

REPORT INFORMATION
  Report Type: 
  Country: None (occurrence: None)
  Receive Date: 20071018
  Receipt Date: 20071003
  Transmission Date: 20080405
  Serious: Yes (Life-Threatening, Hospitalization)
  Sender: FDA-Public Use
  Company Number: 2007S1009819

PATIENT
  Age: 67 Year
  Sex: Male

DRUGS (28)
  1. DOXYCYCLINE [Suspect]
     Indication: DRUG USE FOR UNKNOWN INDICATION
     Dosage: ORAL
     Route: 048
  2. ACOMPLIA [Suspect]
     Indication: WEIGHT DECREASED
     Dosage: 20 MG; DAILY; ORAL
     Route: 048
  3. ALLOPURINOL [Concomitant]
  4. AMOXICILLIN [Concomitant]
  5. ASPIRIN [Concomitant]
  6. ATORVASTATIN [Concomitant]
  7. BUDESONIDE [Concomitant]
  8. CHLORHEXIDINE GLUCONATE [Concomitant]
  9. CIALIS [Concomitant]
  10. HYDORCORTISONE W/MICONAZOLE [Concomitant]
  11. PARAFFIN [Concomitant]
  12. DOUBLEBASE L [Concomitant]
  13. DOXYCYCLINE [Concomitant]
  14. ERYTHROMYCIN [Concomitant]
  15. FORMOTEROL FUMARATE [Concomitant]
  16. FORMOTEROL FUMARATE [Concomitant]
  17. FUROSEMIDE [Concomitant]
  18. GLIPIZIDE [Concomitant]
  19. HYDORCHLOROTHIAZIDE [Concomitant]
  20. LANSOPRAZOLE [Concomitant]
  21. LISINOPRIL [Concomitant]
  22. METFORMIN [Concomitant]
  23. MICONAZOLE [Concomitant]
  24. PREDNISOLONE [Concomitant]
  25. RAMIPRIL [Concomitant]
  26. ROSIGLITAZONE [Concomitant]
  27. SALAMOL [Concomitant]
  28. TIOTROPIUM BROMIDE [Concomitant]

REACTIONS (7)
  - BLOOD GLUCOSE ABNORMAL [None]
  - COUGH [None]
  - DERMATITIS EXFOLIATIVE [None]
  - DRUG INTERACTION [None]
  - DYSPNOEA [None]
  - RENAL FAILURE ACUTE [None]
  - TOXIC SHOCK SYNDROME [None]
